FAERS Safety Report 9549467 (Version 1)
Quarter: 2013Q3

REPORT INFORMATION
  Report Type: Spontaneous
  Country: NL (occurrence: None)
  Receive Date: 20130919
  Receipt Date: 20130919
  Transmission Date: 20140515
  Serious: Yes (Hospitalization)
  Sender: FDA-Public Use
  Company Number: 2013000250

PATIENT
  Age: 68 Year
  Sex: Female

DRUGS (3)
  1. ACEON [Suspect]
     Indication: CARDIAC FAILURE
     Route: 048
     Dates: start: 201208, end: 20130517
  2. FUROSEMIDE [Suspect]
     Indication: CARDIAC FAILURE
     Route: 048
     Dates: start: 201209, end: 20130515
  3. HYDROCHLOROTHIAZIDE [Suspect]
     Indication: HYPERTENSION
     Route: 048
     Dates: start: 200808, end: 20130515

REACTIONS (3)
  - Electrolyte imbalance [None]
  - Hyponatraemia [None]
  - Fall [None]
